FAERS Safety Report 4324281-8 (Version None)
Quarter: 2004Q1

REPORT INFORMATION
  Report Type: 
  Country: None (occurrence: None)
  Receive Date: 20040326
  Receipt Date: 20040120
  Transmission Date: 20041129
  Serious: No
  Sender: FDA-Public Use
  Company Number: US-GLAXOSMITHKLINE-A0494240A

PATIENT
  Age: 49 Year
  Sex: Female

DRUGS (9)
  1. ADVAIR DISKUS 100/50 [Suspect]
     Dosage: 100MCG TWICE PER DAY
     Route: 055
     Dates: start: 19970101
  2. ALBUTEROL [Suspect]
     Route: 055
  3. SINGULAIR [Concomitant]
  4. PAXIL [Concomitant]
     Dosage: 50MG UNKNOWN
     Route: 065
  5. PLAQUENIL [Concomitant]
     Route: 065
  6. ZANAFLEX [Concomitant]
  7. ZESTRIL [Concomitant]
  8. HYDROCHLOROTHIAZIDE [Concomitant]
     Route: 065
  9. HORMONE PATCH [Concomitant]

REACTIONS (1)
  - ORAL CANDIDIASIS [None]
